FAERS Safety Report 12580660 (Version 2)
Quarter: 2016Q3

REPORT INFORMATION
  Report Type: Report from Study
  Country: US (occurrence: US)
  Receive Date: 20160721
  Receipt Date: 20160921
  Transmission Date: 20161109
  Serious: No
  Sender: FDA-Public Use
  Company Number: PHEH2016US017804

PATIENT
  Age: 64 Year
  Sex: Female
  Weight: 150 kg

DRUGS (1)
  1. COSENTYX [Suspect]
     Active Substance: SECUKINUMAB
     Indication: PSORIASIS
     Dosage: 300 MG, QMO
     Route: 058
     Dates: start: 20160107

REACTIONS (6)
  - Paraesthesia oral [Recovered/Resolved]
  - Injection site reaction [Unknown]
  - Drug effect incomplete [Unknown]
  - Dysgeusia [Recovered/Resolved]
  - Injection site erythema [Unknown]
  - Injection site swelling [Recovered/Resolved]

NARRATIVE: CASE EVENT DATE: 20160107
